FAERS Safety Report 8591119-2 (Version None)
Quarter: 2012Q3

REPORT INFORMATION
  Report Type: 
  Country: None (occurrence: None)
  Receive Date: 20120813
  Receipt Date: 20120810
  Transmission Date: 20120928
  Serious: No
  Sender: FDA-Public Use
  Company Number: US-PFIZER INC-2012196007

PATIENT
  Age: 42 Year
  Sex: Female
  Weight: 83.9 kg

DRUGS (16)
  1. NEURONTIN [Suspect]
     Dosage: 300 MG, ONE IN MORNING, ONE IN AFTERNOON AND TWO AT NIGHT
     Dates: start: 20120802
  2. FLUTICASONE PROPIONATE [Concomitant]
     Indication: ASTHMA
     Dosage: 250/50 UG, 2X/DAY
  3. PLAQUENIL [Concomitant]
     Indication: CONNECTIVE TISSUE DISORDER
     Dosage: 200 MG, 2X/DAY
  4. CYCLOBENZAPRINE [Concomitant]
     Indication: MUSCLE DISORDER
     Dosage: 10 MG, DAILY
  5. LYRICA [Suspect]
     Indication: FIBROMYALGIA
     Dosage: 25 MG, 2X/DAY
     Dates: start: 20120601
  6. LYRICA [Suspect]
     Dosage: 50 MG, 2X/DAY
     Dates: start: 20120101
  7. PROAMATINE [Concomitant]
     Indication: POSTURAL ORTHOSTATIC TACHYCARDIA SYNDROME
     Dosage: 5 MG, 3X/DAY
  8. LYRICA [Suspect]
     Dosage: UNK, 2X/DAY
     Dates: end: 20120705
  9. TRAZODONE [Concomitant]
     Indication: SLEEP DISORDER
     Dosage: 100 MG, DAILY
  10. LYRICA [Suspect]
     Dosage: 75 MG, 2X/DAY
     Dates: start: 20120703
  11. LIPITOR [Concomitant]
     Indication: BLOOD CHOLESTEROL INCREASED
     Dosage: 40 MG, DAILY
  12. DEPAKOTE [Concomitant]
     Indication: MIGRAINE
     Dosage: 500 MG, 2X/DAY
  13. BENTYL [Concomitant]
     Indication: IRRITABLE BOWEL SYNDROME
     Dosage: 20 MG, 4X/DAY
  14. NEURONTIN [Suspect]
     Indication: NEUROPATHY PERIPHERAL
     Dosage: 300 MG, 2X/DAY
     Dates: start: 20120716
  15. NEURONTIN [Suspect]
     Indication: HYPOAESTHESIA
     Dosage: 300 MG, 3X/DAY
     Dates: start: 20120723
  16. ALBUTEROL SULFATE [Concomitant]
     Indication: ASTHMA
     Dosage: UNK, AS NEEDED

REACTIONS (10)
  - DECREASED APPETITE [None]
  - NAUSEA [None]
  - HEADACHE [None]
  - FEELING DRUNK [None]
  - FATIGUE [None]
  - COORDINATION ABNORMAL [None]
  - DRY MOUTH [None]
  - DIZZINESS [None]
  - DRUG INEFFECTIVE [None]
  - TREMOR [None]
